FAERS Safety Report 20329162 (Version 1)
Quarter: 2022Q1

REPORT INFORMATION
  Report Type: Spontaneous
  Country: US (occurrence: US)
  Receive Date: 20220112
  Receipt Date: 20220112
  Transmission Date: 20220423
  Serious: No
  Sender: FDA-Public Use
  Company Number: US-MYLANLABS-2021M1094640

PATIENT
  Age: 41 Year
  Sex: Female

DRUGS (4)
  1. EPIPEN [Suspect]
     Active Substance: EPINEPHRINE
     Indication: Dyspnoea
     Dosage: UNK
     Route: 065
     Dates: start: 202112
  2. EPIPEN [Suspect]
     Active Substance: EPINEPHRINE
     Indication: Pyrexia
  3. EPIPEN [Suspect]
     Active Substance: EPINEPHRINE
     Indication: Injection site swelling
  4. EPIPEN [Suspect]
     Active Substance: EPINEPHRINE
     Indication: Injection site erythema

REACTIONS (1)
  - Off label use [Unknown]

NARRATIVE: CASE EVENT DATE: 20211201
